FAERS Safety Report 9793017 (Version 4)
Quarter: 2015Q1

REPORT INFORMATION
  Report Type: Report from Study
  Country: JP (occurrence: JP)
  Receive Date: 20140102
  Receipt Date: 20150226
  Transmission Date: 20150721
  Serious: Yes (Life-Threatening, Disabling)
  Sender: FDA-Public Use
  Company Number: JP-PFIZER INC-2013372405

PATIENT
  Age: 66 Year
  Sex: Male
  Weight: 65 kg

DRUGS (7)
  1. CRIZOTINIB [Suspect]
     Active Substance: CRIZOTINIB
     Indication: NON-SMALL CELL LUNG CANCER
     Dosage: 250 MG, 2X/DAY
     Route: 048
     Dates: start: 20130108, end: 20130130
  2. LANTUS [Concomitant]
     Active Substance: INSULIN GLARGINE
     Dosage: 14 IU, 1X/DAY
     Dates: end: 20130208
  3. HUMALOG [Concomitant]
     Active Substance: INSULIN LISPRO
     Dosage: 16 IU, 3X/DAY
     Dates: end: 20130208
  4. MYSLEE [Concomitant]
     Active Substance: ZOLPIDEM TARTRATE
     Dosage: 10 MG, 1X/DAY
     Route: 048
  5. SILECE [Concomitant]
     Active Substance: FLUNITRAZEPAM
     Dosage: 1 MG, 1X/DAY
     Route: 048
     Dates: end: 20130307
  6. HALCION [Concomitant]
     Active Substance: TRIAZOLAM
     Dosage: 0.25 MG, 1X/DAY
     Route: 048
     Dates: start: 20130127
  7. CRIZOTINIB [Suspect]
     Active Substance: CRIZOTINIB
     Dosage: 200 MG, 2X/DAY
     Route: 048
     Dates: start: 20130220, end: 20131126

REACTIONS (3)
  - Pulmonary oedema [Recovered/Resolved]
  - Peripheral motor neuropathy [Not Recovered/Not Resolved]
  - Acute kidney injury [Recovered/Resolved]

NARRATIVE: CASE EVENT DATE: 20130110
